FAERS Safety Report 7843309-1 (Version None)
Quarter: 2011Q4

REPORT INFORMATION
  Report Type: 
  Country: None (occurrence: None)
  Receive Date: 20111025
  Receipt Date: 20111018
  Transmission Date: 20120403
  Serious: Yes (Other)
  Sender: FDA-Public Use
  Company Number: GB-ROCHE-1001116

PATIENT
  Sex: Female

DRUGS (2)
  1. NO DRUG ADMINISTERED [Suspect]
     Indication: PRODUCT USED FOR UNKNOWN INDICATION
  2. MYCOPHENOLATE MOFETIL [Suspect]
     Indication: CONNECTIVE TISSUE DISORDER
     Route: 048

REACTIONS (3)
  - PRODUCT TASTE ABNORMAL [None]
  - OFF LABEL USE [None]
  - RETCHING [None]
